FAERS Safety Report 25381564 (Version 1)
Quarter: 2025Q2

REPORT INFORMATION
  Report Type: Spontaneous
  Country: US (occurrence: US)
  Receive Date: 20250531
  Receipt Date: 20250531
  Transmission Date: 20250717
  Serious: No
  Sender: CIPLA
  Company Number: US-CIPLA LTD.-2024US13630

PATIENT

DRUGS (6)
  1. ALBUTEROL [Suspect]
     Active Substance: ALBUTEROL
     Indication: Product used for unknown indication
     Dosage: 180 MICROGRAM, QID (REGULAR USER)
     Route: 065
     Dates: start: 2023
  2. ALBUTEROL [Suspect]
     Active Substance: ALBUTEROL
     Dosage: 180 MICROGRAM, QID (INHALER 1)
     Route: 065
  3. ALBUTEROL [Suspect]
     Active Substance: ALBUTEROL
     Dosage: 180 MICROGRAM, QID (INHALER 2)
     Route: 065
     Dates: start: 20241028
  4. VENTOLIN [Concomitant]
     Active Substance: ALBUTEROL SULFATE
     Indication: Product used for unknown indication
     Route: 065
  5. PROVENTIL [Concomitant]
     Active Substance: ALBUTEROL
     Indication: Product used for unknown indication
     Route: 065
  6. PROAIR HFA [Concomitant]
     Active Substance: ALBUTEROL SULFATE
     Indication: Product used for unknown indication
     Route: 065

REACTIONS (2)
  - Drug dose omission by device [Unknown]
  - Device delivery system issue [Unknown]

NARRATIVE: CASE EVENT DATE: 20241117
